FAERS Safety Report 14870003 (Version 1)
Quarter: 2018Q2

REPORT INFORMATION
  Report Type: Report from Study
  Country: NL (occurrence: NL)
  Receive Date: 20180509
  Receipt Date: 20180509
  Transmission Date: 20180711
  Serious: Yes (Hospitalization)
  Sender: FDA-Public Use
  Company Number: US-ASTRAZENECA-2018SE41960

PATIENT
  Age: 15 Month
  Sex: Male
  Weight: 9.8 kg

DRUGS (1)
  1. SYNAGIS [Suspect]
     Active Substance: PALIVIZUMAB
     Indication: ANTIVIRAL PROPHYLAXIS
     Dosage: MONTHLY
     Route: 030
     Dates: start: 20171011, end: 20180227

REACTIONS (1)
  - Human bocavirus infection [Recovered/Resolved]

NARRATIVE: CASE EVENT DATE: 201803
